FAERS Safety Report 14875311 (Version 2)
Quarter: 2018Q3

REPORT INFORMATION
  Report Type: Spontaneous
  Country: GB (occurrence: GB)
  Receive Date: 20180510
  Receipt Date: 20180807
  Transmission Date: 20181010
  Serious: Yes (Other)
  Sender: FDA-Public Use
  Company Number: GB-SA-2018SA119954

PATIENT
  Age: 18 Year
  Sex: Female

DRUGS (9)
  1. MYCOPHENOLATE MOFETIL. [Suspect]
     Active Substance: MYCOPHENOLATE MOFETIL
     Indication: PROPHYLAXIS AGAINST GRAFT VERSUS HOST DISEASE
     Dosage: DAY +5 ONWARDS
     Route: 065
  2. CYCLOPHOSPHAMIDE. [Suspect]
     Active Substance: CYCLOPHOSPHAMIDE
     Indication: BONE MARROW TRANSPLANT
     Dosage: CONDITIONING REGIMEN; OFF LABEL USE
     Route: 065
  3. DEXAMETHASONE. [Concomitant]
     Active Substance: DEXAMETHASONE
     Indication: PROPHYLAXIS AGAINST GRAFT VERSUS HOST DISEASE
  4. CYCLOPHOSPHAMIDE. [Suspect]
     Active Substance: CYCLOPHOSPHAMIDE
     Indication: BONE MARROW CONDITIONING REGIMEN
  5. CICLOSPORIN [Suspect]
     Active Substance: CYCLOSPORINE
     Indication: PROPHYLAXIS AGAINST GRAFT VERSUS HOST DISEASE
     Dosage: ON DAY +43
  6. CYCLOPHOSPHAMIDE. [Suspect]
     Active Substance: CYCLOPHOSPHAMIDE
     Indication: PROPHYLAXIS AGAINST GRAFT VERSUS HOST DISEASE
     Dosage: DAY +3 +4 POST TRANSPLANTATION; INFUSION
  7. THIOTEPA. [Suspect]
     Active Substance: THIOTEPA
     Indication: BONE MARROW TRANSPLANT
     Dosage: UNK UNK,UNK
     Route: 065
  8. SIROLIMUS. [Suspect]
     Active Substance: SIROLIMUS
     Indication: PROPHYLAXIS AGAINST GRAFT VERSUS HOST DISEASE
     Dosage: DAY +5 ONWARDS
     Route: 065
  9. ANTI?THYMOCYTE GLOBULIN (RABBIT) NOS [Suspect]
     Active Substance: LAPINE T-LYMPHOCYTE IMMUNE GLOBULIN
     Indication: BONE MARROW TRANSPLANT
     Dosage: UNK UNK,UNK
     Route: 065

REACTIONS (15)
  - Thrombotic microangiopathy [Recovered/Resolved]
  - Haemolysis [Unknown]
  - Confusional state [Recovered/Resolved]
  - Histiocytosis haematophagic [Recovered/Resolved]
  - Headache [Recovered/Resolved]
  - Meningitis [Unknown]
  - Blood iron increased [Recovered/Resolved]
  - Febrile neutropenia [Recovered/Resolved]
  - Off label use [Unknown]
  - Leukocytosis [Recovered/Resolved]
  - Neutrophilia [Recovered/Resolved]
  - Thrombocytopenia [Recovered/Resolved]
  - Renal injury [Recovered/Resolved]
  - Microangiopathic haemolytic anaemia [Recovered/Resolved]
  - Human herpesvirus 6 infection [Unknown]
